FAERS Safety Report 16767873 (Version 2)
Quarter: 2019Q4

REPORT INFORMATION
  Report Type: Spontaneous
  Country: JP (occurrence: JP)
  Receive Date: 20190903
  Receipt Date: 20191023
  Transmission Date: 20200122
  Serious: Yes (Hospitalization)
  Sender: FDA-Public Use
  Company Number: JP-SA-2019SA242142

PATIENT
  Age: 70 Year
  Sex: Male
  Weight: 68 kg

DRUGS (15)
  1. ALDACTONE A [Concomitant]
     Active Substance: SPIRONOLACTONE
     Dosage: UNK
  2. MICARDIS [Concomitant]
     Active Substance: TELMISARTAN
     Dosage: UNK
  3. INSULIN GLARGINE [Concomitant]
     Active Substance: INSULIN GLARGINE
     Dosage: UNK
  4. ALOXI [Concomitant]
     Active Substance: PALONOSETRON HYDROCHLORIDE
     Dosage: UNK
     Dates: start: 20190625, end: 20190807
  5. AMLODIPINE [AMLODIPINE BESILATE] [Concomitant]
     Active Substance: AMLODIPINE BESYLATE
     Dosage: UNK
  6. ENALAPRIL [ENALAPRIL MALEATE] [Concomitant]
     Active Substance: ENALAPRIL MALEATE
     Dosage: UNK
  7. FEBURIC [Concomitant]
     Active Substance: FEBUXOSTAT
     Dosage: UNK
  8. LIXIANA [Concomitant]
     Active Substance: EDOXABAN TOSYLATE
     Dosage: UNK
     Dates: start: 20190513, end: 20190909
  9. NORMONAL [Concomitant]
     Dosage: UNK
  10. FUROSEMIDE. [Concomitant]
     Active Substance: FUROSEMIDE
     Dosage: UNK
  11. ELPLAT [Suspect]
     Active Substance: OXALIPLATIN
     Indication: COLON CANCER
     Dosage: 220 MG, Q3W
     Route: 041
     Dates: start: 20190625, end: 20190625
  12. ELPLAT [Suspect]
     Active Substance: OXALIPLATIN
     Dosage: 220 MG, Q3W
     Route: 041
     Dates: start: 20190807, end: 20190807
  13. NOVORAPID [Concomitant]
     Active Substance: INSULIN ASPART
     Dosage: UNK
  14. XELODA [Concomitant]
     Active Substance: CAPECITABINE
     Dosage: UNK UNK, UNK
     Route: 065
     Dates: start: 20190625, end: 20190815
  15. DEXART [Concomitant]
     Active Substance: DEXAMETHASONE SODIUM PHOSPHATE
     Dosage: UNK
     Dates: start: 20190625, end: 20190807

REACTIONS (1)
  - Hypoalbuminaemia [Recovering/Resolving]

NARRATIVE: CASE EVENT DATE: 20190729
